FAERS Safety Report 6429269-9 (Version None)
Quarter: 2009Q4

REPORT INFORMATION
  Report Type: 
  Country: None (occurrence: None)
  Receive Date: 20091105
  Receipt Date: 20091030
  Transmission Date: 20100525
  Serious: Yes (Other)
  Sender: FDA-Public Use
  Company Number: PHHY2009BE47982

PATIENT

DRUGS (2)
  1. SANDOSTATIN LAR [Suspect]
     Indication: CARCINOID TUMOUR OF THE SMALL BOWEL
     Dosage: 50 MG, UNK
  2. SANDOSTATIN LAR [Suspect]
     Indication: METASTASES TO LIVER

REACTIONS (2)
  - DISEASE PROGRESSION [None]
  - NODULE [None]
